FAERS Safety Report 17819391 (Version 3)
Quarter: 2020Q3

REPORT INFORMATION
  Report Type: Other
  Country: HU (occurrence: HU)
  Receive Date: 20200523
  Receipt Date: 20200915
  Transmission Date: 20201102
  Serious: Yes (Death)
  Sender: FDA-Public Use
  Company Number: HU-ROCHE-2606581

PATIENT
  Age: 57 Year
  Sex: Male

DRUGS (5)
  1. HUMAN IMMUNOGLOBULIN (IMMUNOGLOBULIN HUMAN NORMAL) [Suspect]
     Active Substance: HUMAN IMMUNOGLOBULIN G
     Indication: NEUROPATHY PERIPHERAL
     Route: 042
  2. RITUXIMAB. [Suspect]
     Active Substance: RITUXIMAB
     Indication: RESPIRATORY FAILURE
  3. RITUXIMAB. [Suspect]
     Active Substance: RITUXIMAB
     Indication: DEMYELINATING POLYNEUROPATHY
     Route: 065
  4. RITUXIMAB. [Suspect]
     Active Substance: RITUXIMAB
     Indication: NEUROPATHY PERIPHERAL
  5. HUMAN IMMUNOGLOBULIN (IMMUNOGLOBULIN HUMAN NORMAL) [Suspect]
     Active Substance: HUMAN IMMUNOGLOBULIN G
     Indication: RESPIRATORY FAILURE
     Dosage: 0.4 GRAM PER KILOGRAM, PER DAY FOR 5 DAYS EVERY 6 WEEKS
     Route: 042

REACTIONS (4)
  - Pneumonia [Fatal]
  - Product use in unapproved indication [Unknown]
  - Off label use [Unknown]
  - Respiratory failure [Fatal]
